FAERS Safety Report 9844116 (Version 2)
Quarter: 2014Q1

REPORT INFORMATION
  Report Type: Spontaneous
  Country: BR (occurrence: BR)
  Receive Date: 20140127
  Receipt Date: 20140221
  Transmission Date: 20141002
  Serious: Yes (Other)
  Sender: FDA-Public Use
  Company Number: BR-ORION CORPORATION ORION PHARMA-ENTC2014-0022

PATIENT
  Age: 77 Year
  Sex: Male
  Weight: 95 kg

DRUGS (8)
  1. STALEVO [Suspect]
     Indication: PARKINSON^S DISEASE
     Dosage: STRENGTH: 50 MG; 01 DF AT 06 AM, 01 DF AT 10 AM, 01 DF AT 02 PM AND 01 DF AT 06 PM
     Route: 048
  2. STALEVO [Suspect]
     Dosage: STRENGTH: 100 MG
     Route: 048
  3. STALEVO [Suspect]
     Dosage: STRENGTH: 50 MG
     Route: 048
     Dates: start: 20140116
  4. DEPAKOTE [Suspect]
     Indication: CONVULSION
     Dosage: STRENGTH: 500 MG
     Route: 048
  5. SIFROL [Concomitant]
     Indication: PARKINSON^S DISEASE
     Dosage: STRENGTH: 0.375
     Route: 048
  6. ZYPREXA [Concomitant]
     Indication: SLEEP DISORDER
     Dosage: STRENGTH: 5 MG
     Route: 048
  7. FOLASTIN [Concomitant]
     Indication: PLATELET DISORDER
     Route: 048
  8. FOLACIN [Concomitant]
     Indication: PLATELET DISORDER
     Route: 048

REACTIONS (5)
  - Drug ineffective [Unknown]
  - Product quality issue [Unknown]
  - Thrombosis [Recovered/Resolved]
  - Motor dysfunction [Not Recovered/Not Resolved]
  - Depression [Not Recovered/Not Resolved]
